FAERS Safety Report 26055717 (Version 1)
Quarter: 2025Q4

REPORT INFORMATION
  Report Type: Report from Study
  Country: GB (occurrence: GB)
  Receive Date: 20251117
  Receipt Date: 20251117
  Transmission Date: 20260118
  Serious: Yes (Other)
  Sender: ABBVIE
  Company Number: GB-ABBVIE-6548633

PATIENT
  Age: 41 Year
  Sex: Female

DRUGS (1)
  1. RINVOQ [Suspect]
     Active Substance: UPADACITINIB
     Indication: Colitis ulcerative
     Dosage: FORM STRENGTH: RINVOQ 30MG
     Route: 048
     Dates: start: 20250604

REACTIONS (2)
  - Intestinal resection [Unknown]
  - Stoma creation [Unknown]

NARRATIVE: CASE EVENT DATE: 20251101
